FAERS Safety Report 7089579-1 (Version None)
Quarter: 2010Q4

REPORT INFORMATION
  Report Type: 
  Country: None (occurrence: None)
  Receive Date: 20101108
  Receipt Date: 20101103
  Transmission Date: 20110411
  Serious: Yes (Death, Hospitalization, Other)
  Sender: FDA-Public Use
  Company Number: DE-CELGENEUS-062-50794-10101376

PATIENT
  Age: 74 Year
  Sex: Male

DRUGS (6)
  1. VIDAZA [Suspect]
     Route: 050
  2. PANTOPRAZOLE SODIUM [Concomitant]
     Route: 065
  3. ALNA [Concomitant]
     Route: 065
  4. VALPROIC ACID [Concomitant]
     Route: 065
  5. AUGMENTIN '125' [Concomitant]
     Dosage: 875/125
     Route: 065
  6. NEUPOGEN [Concomitant]
     Route: 058

REACTIONS (3)
  - FEBRILE NEUTROPENIA [None]
  - PNEUMONIA [None]
  - SEPSIS [None]
